FAERS Safety Report 12779289 (Version 2)
Quarter: 2016Q4

REPORT INFORMATION
  Report Type: Spontaneous
  Country: DE (occurrence: DE)
  Receive Date: 20160926
  Receipt Date: 20161010
  Transmission Date: 20170207
  Serious: Yes (Hospitalization)
  Sender: FDA-Public Use
  Company Number: DE-ROCHE-1834725

PATIENT
  Sex: Female

DRUGS (11)
  1. VINCRISTINE [Suspect]
     Active Substance: VINCRISTINE
     Indication: B-CELL LYMPHOMA
     Dosage: MOST RECENT DOSE ON 25/AUG/2016 PRIOR TO SAE
     Route: 042
     Dates: start: 20160615, end: 20160615
  2. SIMVASTATIN. [Concomitant]
     Active Substance: SIMVASTATIN
  3. ACETYLSALICYLIC ACID [Concomitant]
     Active Substance: ASPIRIN
  4. RITUXIMAB [Suspect]
     Active Substance: RITUXIMAB
     Indication: B-CELL LYMPHOMA
     Dosage: PRIOR SAE; 07/SEP/2016
     Route: 042
     Dates: start: 20160615
  5. PEGFILGRASTIM [Suspect]
     Active Substance: PEGFILGRASTIM
     Indication: B-CELL LYMPHOMA
     Dosage: EVERY 2 WEEKS ON DAY 4
     Route: 058
     Dates: start: 20160615, end: 20160827
  6. CYCLOPHOSPHAMIDE. [Suspect]
     Active Substance: CYCLOPHOSPHAMIDE
     Indication: B-CELL LYMPHOMA
     Dosage: MOST RECENT DOSE ON 25/AUG/2016 PRIOR TO SAE
     Route: 042
     Dates: start: 20160615, end: 20160825
  7. PREDNISOLONE. [Suspect]
     Active Substance: PREDNISOLONE
     Indication: B-CELL LYMPHOMA
     Dosage: DAY 1-5, MOST RECENT DOSE ON 25/AUG/2016 PRIOR TO SAE
     Route: 048
     Dates: start: 20160615, end: 20160828
  8. BISOPROLOL [Concomitant]
     Active Substance: BISOPROLOL
  9. INSULIN ASPART [Concomitant]
     Active Substance: INSULIN ASPART
  10. DOXORUBICINE [Suspect]
     Active Substance: DOXORUBICIN
     Indication: B-CELL LYMPHOMA
     Dosage: MOST RECENT DOSE ON 25/AUG/2016 PRIOR TO SAE
     Route: 042
     Dates: start: 20160615, end: 20160825
  11. METFORMIN [Concomitant]
     Active Substance: METFORMIN HYDROCHLORIDE

REACTIONS (1)
  - Pulmonary embolism [Not Recovered/Not Resolved]
